FAERS Safety Report 6971508-X (Version None)
Quarter: 2010Q3

REPORT INFORMATION
  Report Type: 
  Country: None (occurrence: None)
  Receive Date: 20100908
  Receipt Date: 20100831
  Transmission Date: 20110219
  Serious: Yes (Hospitalization)
  Sender: FDA-Public Use
  Company Number: SG-PFIZER INC-2010112228

PATIENT
  Age: 83 Year
  Sex: Female

DRUGS (3)
  1. ATENOLOL [Suspect]
  2. TOLTERODINE TARTRATE [Suspect]
  3. NIFEDIPINE [Suspect]

REACTIONS (2)
  - DRUG RASH WITH EOSINOPHILIA AND SYSTEMIC SYMPTOMS [None]
  - HEPATITIS [None]
